FAERS Safety Report 15897687 (Version 2)
Quarter: 2019Q1

REPORT INFORMATION
  Report Type: Report from Study
  Country: None (occurrence: CL)
  Receive Date: 20190131
  Receipt Date: 20190315
  Transmission Date: 20190417
  Serious: Yes (Hospitalization)
  Sender: FDA-Public Use
  Company Number: CL-ABBVIE-19K-034-2644496-00

PATIENT
  Sex: Female

DRUGS (2)
  1. POLYVINYL ALCOHOL [Concomitant]
     Active Substance: POLYVINYL ALCOHOL
     Indication: DACRYOSTENOSIS ACQUIRED
     Dosage: 1 EYEDROP PER EYE
  2. HUMIRA [Suspect]
     Active Substance: ADALIMUMAB
     Indication: RHEUMATOID ARTHRITIS
     Route: 058
     Dates: start: 20171117

REACTIONS (7)
  - Injection site swelling [Recovered/Resolved]
  - Ocular discomfort [Recovering/Resolving]
  - Dacryostenosis acquired [Recovered/Resolved]
  - Pain in extremity [Unknown]
  - Injection site erythema [Recovered/Resolved]
  - Limb mass [Unknown]
  - Procedural pain [Unknown]
